FAERS Safety Report 12789550 (Version 1)
Quarter: 2016Q3

REPORT INFORMATION
  Report Type: Spontaneous
  Country: JP (occurrence: JP)
  Receive Date: 20160928
  Receipt Date: 20160928
  Transmission Date: 20161109
  Serious: Yes (Life-Threatening, Hospitalization, Other)
  Sender: FDA-Public Use
  Company Number: JP-PFIZER INC-2016432888

PATIENT
  Age: 79 Year
  Sex: Female

DRUGS (7)
  1. TAKEPRON [Concomitant]
     Active Substance: LANSOPRAZOLE
     Dosage: 30 MG, DAILY
     Route: 048
  2. FOLIAMIN [Concomitant]
     Active Substance: FOLIC ACID
     Dosage: 5 MG, DAILY
  3. METHOTREXATE SODIUM. [Suspect]
     Active Substance: METHOTREXATE SODIUM
     Dosage: 10 MG, WEEKLY
     Route: 048
     Dates: start: 2014, end: 201604
  4. BLOPRESS [Concomitant]
     Active Substance: CANDESARTAN CILEXETIL
     Dosage: 2 MG, DAILY
     Route: 048
  5. LOXONIN [Concomitant]
     Active Substance: LOXOPROFEN SODIUM
     Dosage: 120 MG, DAILY
     Route: 048
  6. EVISTA [Concomitant]
     Active Substance: RALOXIFENE HYDROCHLORIDE
     Dosage: 60 MG, DAILY
     Route: 048
  7. CARERAM [Concomitant]
     Active Substance: IGURATIMOD
     Dosage: 25 MG, DAILY

REACTIONS (2)
  - Epstein-Barr virus antigen positive [Recovered/Resolved]
  - Osteonecrosis of jaw [Recovered/Resolved]

NARRATIVE: CASE EVENT DATE: 201603
